FAERS Safety Report 5592909-0 (Version None)
Quarter: 2008Q1

REPORT INFORMATION
  Report Type: 
  Country: None (occurrence: None)
  Receive Date: 20080114
  Receipt Date: 20080114
  Transmission Date: 20080703
  Serious: Yes (Hospitalization)
  Sender: FDA-Public Use
  Company Number: None

PATIENT
  Sex: Male
  Weight: 117.9352 kg

DRUGS (2)
  1. AZITHROMYCIN [Suspect]
     Indication: LOWER RESPIRATORY TRACT INFECTION
     Dosage: 1ST DAY - 2 TABLETS  ONCE PER DAY  PO
     Route: 048
     Dates: start: 20071221, end: 20071225
  2. AZITHROMYCIN [Suspect]
     Dosage: 2ND TO 5TH DAY - 1 TABLET  ONCE PER DAY  PO
     Route: 048

REACTIONS (9)
  - BLOOD BLISTER [None]
  - BLOOD URINE PRESENT [None]
  - CONJUNCTIVITIS [None]
  - DYSURIA [None]
  - KETOSIS [None]
  - NASAL DISCOMFORT [None]
  - ORAL INTAKE REDUCED [None]
  - PAINFUL DEFAECATION [None]
  - PHARYNGOLARYNGEAL PAIN [None]
